FAERS Safety Report 5932406-3 (Version None)
Quarter: 2008Q4

REPORT INFORMATION
  Report Type: 
  Country: None (occurrence: None)
  Receive Date: 20081027
  Receipt Date: 20081027
  Transmission Date: 20090506
  Serious: Yes (Disabling)
  Sender: FDA-Public Use
  Company Number: None

PATIENT
  Sex: Female
  Weight: 79.3795 kg

DRUGS (4)
  1. VENLAFAXINE HCL [Suspect]
     Indication: ANXIETY
     Dosage: 1 TABLET DAILY PO
     Route: 048
     Dates: start: 20080918, end: 20080918
  2. VENLAFAXINE HCL [Suspect]
     Indication: DEPRESSION
     Dosage: 1 TABLET DAILY PO
     Route: 048
     Dates: start: 20080918, end: 20080918
  3. TRAMADOL HCL [Suspect]
     Indication: CONGENITAL CYSTIC KIDNEY DISEASE
     Dosage: 1 TO 2 TABLETS EVERY 6 HRS PO
     Route: 048
     Dates: start: 20060701, end: 20081026
  4. TRAMADOL HCL [Suspect]
     Indication: RENAL PAIN
     Dosage: 1 TO 2 TABLETS EVERY 6 HRS PO
     Route: 048
     Dates: start: 20060701, end: 20081026

REACTIONS (7)
  - DIZZINESS [None]
  - HYPERTENSION [None]
  - MALAISE [None]
  - NAUSEA [None]
  - PALPITATIONS [None]
  - SEROTONIN SYNDROME [None]
  - SOMNOLENCE [None]
